FAERS Safety Report 8623871-1 (Version None)
Quarter: 2012Q3

REPORT INFORMATION
  Report Type: 
  Country: None (occurrence: None)
  Receive Date: 20120827
  Receipt Date: 20120827
  Transmission Date: 20120928
  Serious: Yes (Other)
  Sender: FDA-Public Use
  Company Number: CN-BAYER-2012-082107

PATIENT
  Sex: Male

DRUGS (2)
  1. GLUCOBAY [Suspect]
     Indication: BLOOD GLUCOSE ABNORMAL
     Dosage: 1 DF, TID
     Route: 048
     Dates: start: 20120601
  2. METFORMIN HCL [Suspect]
     Dosage: UNK
     Route: 048
     Dates: start: 20120601

REACTIONS (1)
  - CACHEXIA [None]
